FAERS Safety Report 18981967 (Version 2)
Quarter: 2021Q1

REPORT INFORMATION
  Report Type: Spontaneous
  Country: US (occurrence: US)
  Receive Date: 20210308
  Receipt Date: 20210309
  Transmission Date: 20210420
  Serious: No
  Sender: FDA-Public Use
  Company Number: US-PFIZER INC-2021194822

PATIENT
  Sex: Male

DRUGS (1)
  1. NORVASC [Suspect]
     Active Substance: AMLODIPINE BESYLATE
     Dosage: 20 MG (DOUBLE DOSE OF NORVASC AND HE HAS TAKEN 20MG INSTEAD OF HIS DOSE OF 10MG]

REACTIONS (2)
  - Headache [Unknown]
  - Incorrect dose administered [Unknown]
